FAERS Safety Report 18513367 (Version 1)
Quarter: 2020Q4

REPORT INFORMATION
  Report Type: Report from Study
  Country: US (occurrence: US)
  Receive Date: 20201118
  Receipt Date: 20201118
  Transmission Date: 20210114
  Serious: Yes (Hospitalization)
  Sender: FDA-Public Use
  Company Number: US-JNJFOC-20160613157

PATIENT
  Age: 82 Year
  Sex: Male
  Weight: 79 kg

DRUGS (21)
  1. FISH OIL [Concomitant]
     Active Substance: FISH OIL
     Indication: VITAMIN SUPPLEMENTATION
     Route: 048
     Dates: start: 200708
  2. ATENOLOL. [Concomitant]
     Active Substance: ATENOLOL
     Indication: HYPERTENSION
     Route: 048
     Dates: start: 2000
  3. IRBESARTAN. [Concomitant]
     Active Substance: IRBESARTAN
     Indication: HYPERTENSION
     Route: 048
     Dates: start: 2000, end: 20160630
  4. PLACEBO [Suspect]
     Active Substance: UNSPECIFIED INGREDIENT
     Indication: PROSTATE CANCER METASTATIC
     Route: 048
     Dates: start: 20150720
  5. SOYA LECITHIN [Concomitant]
     Active Substance: DIETARY SUPPLEMENT
     Indication: PROPHYLAXIS
     Route: 048
     Dates: start: 1995
  6. FOLIC ACID. [Concomitant]
     Active Substance: FOLIC ACID
     Indication: VITAMIN SUPPLEMENTATION
  7. SELENIUM [Concomitant]
     Active Substance: SELENIUM
     Indication: PROPHYLAXIS
     Route: 048
     Dates: start: 1995
  8. GLUCOSAMINE SULFATE [Concomitant]
     Active Substance: GLUCOSAMINE SULFATE
     Indication: VITAMIN SUPPLEMENTATION
     Route: 048
     Dates: start: 1995
  9. PREDNSIONE [Suspect]
     Active Substance: PREDNISONE
     Indication: PROSTATE CANCER METASTATIC
     Route: 048
     Dates: start: 20150720
  10. CALCIUM [Concomitant]
     Active Substance: CALCIUM
     Indication: VITAMIN SUPPLEMENTATION
     Route: 048
     Dates: start: 1995
  11. CALCIUM [Concomitant]
     Active Substance: CALCIUM
     Indication: PROPHYLAXIS
  12. VITAMIN B12 [Concomitant]
     Active Substance: CYANOCOBALAMIN
     Indication: PROPHYLAXIS
     Route: 048
     Dates: start: 1995
  13. ABIRATERONE ACETATE. [Suspect]
     Active Substance: ABIRATERONE ACETATE
     Indication: PROSTATE CANCER METASTATIC
     Route: 048
     Dates: start: 20150720
  14. SELENIUM [Concomitant]
     Active Substance: SELENIUM
     Indication: VITAMIN SUPPLEMENTATION
  15. LUTEIN [Concomitant]
     Active Substance: LUTEIN
     Indication: PROPHYLAXIS
     Route: 048
     Dates: start: 1995
  16. LUTEIN [Concomitant]
     Active Substance: LUTEIN
     Indication: VITAMIN SUPPLEMENTATION
  17. VITAMIN B12 [Concomitant]
     Active Substance: CYANOCOBALAMIN
     Indication: VITAMIN SUPPLEMENTATION
  18. VYTORIN [Concomitant]
     Active Substance: EZETIMIBE\SIMVASTATIN
     Indication: HYPERCHOLESTEROLAEMIA
     Dosage: 10-40 MG DAILY
     Route: 048
     Dates: start: 1998, end: 20160722
  19. FOLIC ACID. [Concomitant]
     Active Substance: FOLIC ACID
     Indication: PROPHYLAXIS
     Route: 048
     Dates: start: 1995
  20. SOYA LECITHIN [Concomitant]
     Active Substance: DIETARY SUPPLEMENT
     Indication: VITAMIN SUPPLEMENTATION
  21. XGEVA [Concomitant]
     Active Substance: DENOSUMAB
     Indication: OSTEOPOROSIS
     Route: 030
     Dates: start: 20150608

REACTIONS (1)
  - Sepsis [Recovered/Resolved]

NARRATIVE: CASE EVENT DATE: 20160528
